FAERS Safety Report 10222615 (Version 1)
Quarter: 2014Q2

REPORT INFORMATION
  Report Type: Spontaneous
  Country: DE (occurrence: DE)
  Receive Date: 20140606
  Receipt Date: 20140606
  Transmission Date: 20141212
  Serious: Yes (Congenital Anomaly)
  Sender: FDA-Public Use
  Company Number: DE-WATSON-2013-25087

PATIENT
  Sex: Male
  Weight: 3.95 kg

DRUGS (1)
  1. LAMOTRIGINE (UNKNOWN) [Suspect]
     Indication: EPILEPSY
     Route: 064

REACTIONS (1)
  - Polydactyly [Recovered/Resolved with Sequelae]
